FAERS Safety Report 5026502-5 (Version None)
Quarter: 2006Q2

REPORT INFORMATION
  Report Type: 
  Country: None (occurrence: None)
  Receive Date: 20060428
  Receipt Date: 20050823
  Transmission Date: 20061013
  Serious: Yes (Hospitalization)
  Sender: FDA-Public Use
  Company Number: MK200508-0283-1

PATIENT
  Sex: Female

DRUGS (1)
  1. RESTORIL [Suspect]

REACTIONS (3)
  - AGITATION [None]
  - CONFUSIONAL STATE [None]
  - HALLUCINATION [None]
